FAERS Safety Report 16903691 (Version 1)
Quarter: 2019Q4

REPORT INFORMATION
  Report Type: Spontaneous
  Country: RU (occurrence: RU)
  Receive Date: 20191010
  Receipt Date: 20191010
  Transmission Date: 20200122
  Serious: Yes (Other)
  Sender: FDA-Public Use
  Company Number: RU-ADHERA THERAPEUTICS, INC.-2019ADHERA000594

PATIENT

DRUGS (2)
  1. PRESTANCE [Suspect]
     Active Substance: AMLODIPINE BESYLATE\PERINDOPRIL ARGININE
     Indication: HYPERTENSION
     Dosage: 1 (5MG/5MG) TABLET, EVERY 2-3 DAYS
     Route: 048
     Dates: start: 2017, end: 2018
  2. PRESTILOL [Suspect]
     Active Substance: BISOPROLOL FUMARATE\PERINDOPRIL ARGININE
     Indication: HYPERTENSION
     Dosage: 0.5 (5MG/5MG) TABLET, EVERY 2-3 DAYS
     Route: 048
     Dates: start: 2018

REACTIONS (3)
  - Hypertensive crisis [Recovered/Resolved]
  - Product use issue [Unknown]
  - Headache [Not Recovered/Not Resolved]

NARRATIVE: CASE EVENT DATE: 2017
